FAERS Safety Report 14522266 (Version 1)
Quarter: 2018Q1

REPORT INFORMATION
  Report Type: Report from Study
  Country: US (occurrence: US)
  Receive Date: 20180212
  Receipt Date: 20180212
  Transmission Date: 20180509
  Serious: No
  Sender: FDA-Public Use
  Company Number: US-AMAG PHARMACEUTICALS, INC.-AMAG201702267

PATIENT

DRUGS (1)
  1. MAKENA [Suspect]
     Active Substance: HYDROXYPROGESTERONE CAPROATE
     Indication: PREMATURE LABOUR
     Dosage: 250 MG/ML, UNK
     Route: 065
     Dates: start: 20170703

REACTIONS (3)
  - Hypokinesia [Unknown]
  - Medication error [Unknown]
  - Pain [Unknown]

NARRATIVE: CASE EVENT DATE: 2017
